FAERS Safety Report 7887693-1 (Version None)
Quarter: 2011Q4

REPORT INFORMATION
  Report Type: 
  Country: None (occurrence: None)
  Receive Date: 20111103
  Receipt Date: 20111025
  Transmission Date: 20120403
  Serious: No
  Sender: FDA-Public Use
  Company Number: US-BIOGENIDEC-2011BI040699

PATIENT
  Sex: Male

DRUGS (2)
  1. AVONEX [Suspect]
     Route: 030
  2. AVONEX [Suspect]
     Indication: MULTIPLE SCLEROSIS
     Route: 030
     Dates: start: 20110824

REACTIONS (16)
  - URINARY TRACT DISORDER [None]
  - GASTROINTESTINAL DISORDER [None]
  - CARDIOVASCULAR DISORDER [None]
  - MULTIPLE SCLEROSIS [None]
  - BLADDER DISORDER [None]
  - ASTHMA [None]
  - TREMOR [None]
  - BODY TEMPERATURE [None]
  - BURNING SENSATION [None]
  - MENTAL DISORDER [None]
  - ARTHRALGIA [None]
  - MYALGIA [None]
  - VOMITING [None]
  - HEADACHE [None]
  - CIRCUMCISED [None]
  - FATIGUE [None]
